FAERS Safety Report 12569561 (Version 1)
Quarter: 2016Q3

REPORT INFORMATION
  Report Type: Spontaneous
  Country: US (occurrence: US)
  Receive Date: 20160719
  Receipt Date: 20160719
  Transmission Date: 20161109
  Serious: No
  Sender: FDA-Public Use
  Company Number: PHEH2016US017763

PATIENT

DRUGS (1)
  1. TASIGNA [Suspect]
     Active Substance: NILOTINIB
     Indication: CHRONIC MYELOID LEUKAEMIA
     Route: 065

REACTIONS (6)
  - Depression [Unknown]
  - Muscle spasms [Unknown]
  - Confusional state [Unknown]
  - Social avoidant behaviour [Unknown]
  - Emotional disorder [Unknown]
  - Weight increased [Unknown]
